FAERS Safety Report 4674346-6 (Version None)
Quarter: 2005Q2

REPORT INFORMATION
  Report Type: 
  Country: None (occurrence: None)
  Receive Date: 20050526
  Receipt Date: 20041018
  Transmission Date: 20051028
  Serious: Yes (Hospitalization, Other)
  Sender: FDA-Public Use
  Company Number: FR-BRISTOL-MYERS SQUIBB COMPANY-12735742

PATIENT
  Age: 75 Year
  Sex: Male

DRUGS (6)
  1. HYDREA [Interacting]
     Indication: SPLENOMEGALY
     Route: 048
     Dates: start: 20040315, end: 20040913
  2. CELIPROLOL [Interacting]
  3. LEVOTHYROX [Suspect]
     Route: 048
     Dates: start: 20040815
  4. MONICOR [Suspect]
     Route: 048
     Dates: start: 20040715
  5. SECTRAL [Suspect]
     Route: 048
     Dates: start: 19950615, end: 20040908
  6. KARDEGIC [Suspect]
     Route: 048
     Dates: start: 19950615

REACTIONS (3)
  - DRUG INTERACTION [None]
  - GANGRENE [None]
  - NECROSIS ISCHAEMIC [None]
